FAERS Safety Report 23595237 (Version 4)
Quarter: 2024Q3

REPORT INFORMATION
  Report Type: Other
  Country: DE (occurrence: DE)
  Receive Date: 20240305
  Receipt Date: 20240726
  Transmission Date: 20241017
  Serious: Yes (Congenital Anomaly, Other)
  Sender: MACLEODS
  Company Number: None

PATIENT

DRUGS (2)
  1. EMTRICITABINE\TENOFOVIR DISOPROXIL [Suspect]
     Active Substance: EMTRICITABINE\TENOFOVIR DISOPROXIL
     Indication: Product used for unknown indication
     Dosage: 445 MILLIGRAM, QD(1 COURSE, NOT PRIOR TO CONCEPTION, EXPOSURE DURING SECOND TRIMESTER)
     Route: 064
     Dates: start: 20231114
  2. DOLUTEGRAVIR [Suspect]
     Active Substance: DOLUTEGRAVIR
     Indication: Product used for unknown indication
     Dosage: 50 MILLIGRAM, QD (1 COURSE, NOT PRIOR TO CONCEPTION, EXPOSURE DURING SECOND TRIMESTER)
     Route: 064
     Dates: start: 20231114

REACTIONS (2)
  - Trisomy 21 [Unknown]
  - Foetal exposure during pregnancy [Unknown]
